FAERS Safety Report 10464967 (Version 1)
Quarter: 2014Q3

REPORT INFORMATION
  Report Type: Spontaneous
  Country: US (occurrence: US)
  Receive Date: 20140919
  Receipt Date: 20140919
  Transmission Date: 20150326
  Serious: Yes (Death, Hospitalization)
  Sender: FDA-Public Use
  Company Number: US-GLAXOSMITHKLINE-A1089212A

PATIENT
  Age: 75 Year
  Sex: Male

DRUGS (5)
  1. ADVAIR HFA [Suspect]
     Active Substance: FLUTICASONE PROPIONATE\SALMETEROL XINAFOATE
     Indication: CHRONIC OBSTRUCTIVE PULMONARY DISEASE
     Dosage: 1PUFF TWICE PER DAY
     Route: 055
  2. OXYGEN. [Concomitant]
     Active Substance: OXYGEN
  3. COMPAZINE [Concomitant]
     Active Substance: PROCHLORPERAZINE MALEATE
  4. PAIN KILLERS [Concomitant]
     Active Substance: UNSPECIFIED INGREDIENT
  5. COUMADIN [Concomitant]
     Active Substance: WARFARIN SODIUM

REACTIONS (2)
  - Gait disturbance [Unknown]
  - Bladder cancer [Fatal]

NARRATIVE: CASE EVENT DATE: 200001
